FAERS Safety Report 10472384 (Version 1)
Quarter: 2014Q3

REPORT INFORMATION
  Report Type: Report from Study
  Country: DE (occurrence: DE)
  Receive Date: 20140924
  Receipt Date: 20140924
  Transmission Date: 20150326
  Serious: Yes (Other)
  Sender: FDA-Public Use
  Company Number: PHHY2014DE121761

PATIENT
  Age: 40 Year
  Sex: Female

DRUGS (6)
  1. FRISIUM [Concomitant]
     Active Substance: CLOBAZAM
     Indication: PAIN
     Dosage: UNK UKN, UNK
     Route: 048
     Dates: start: 20120923, end: 20130430
  2. VOLTAREN [Suspect]
     Active Substance: DICLOFENAC SODIUM
     Indication: PAIN
     Dosage: UNK UKN, UNK
     Route: 048
     Dates: start: 20120923, end: 20130705
  3. OMEP [Concomitant]
     Active Substance: OMEPRAZOLE
     Indication: GASTRITIS PROPHYLAXIS
     Dosage: UNK UKN, UNK
     Route: 048
     Dates: start: 20120923, end: 20130705
  4. CELEBREX [Suspect]
     Active Substance: CELECOXIB
     Indication: PAIN
     Dosage: UNK UKN, UNK
     Route: 048
     Dates: start: 20120923, end: 20130705
  5. TRAMAL [Concomitant]
     Active Substance: TRAMADOL
     Indication: PAIN
     Dosage: UNK UKN, UNK
     Route: 048
     Dates: start: 20120923, end: 20130705
  6. BUSCOPAN [Concomitant]
     Active Substance: BUTYLSCOPOLAMINE BROMIDE
     Indication: PAIN
     Dosage: UNK UKN, UNK
     Route: 048

REACTIONS (1)
  - Oligohydramnios [Recovered/Resolved]
